FAERS Safety Report 8538445-0 (Version None)
Quarter: 2012Q3

REPORT INFORMATION
  Report Type: 
  Country: None (occurrence: None)
  Receive Date: 20120712
  Receipt Date: 20120703
  Transmission Date: 20120928
  Serious: Yes (Death)
  Sender: FDA-Public Use
  Company Number: AUR-APL-2012-02905

PATIENT
  Age: 45 Year
  Sex: Male
  Weight: 104.2 kg

DRUGS (4)
  1. MIRTAZAPINE [Suspect]
     Indication: DEPRESSED MOOD
     Dosage: (30 MG), ORAL
     Route: 048
  2. CLOZAPINE [Suspect]
     Indication: SCHIZOPHRENIA
     Dosage: (450 MG), ORAL
     Route: 048
  3. CITALOPRAM HYDROBROMIDE [Suspect]
     Indication: DEPRESSED MOOD
     Dosage: (40 MG), ORAL
     Route: 048
  4. ARIPIPRAZOLE [Suspect]
     Indication: SCHIZOPHRENIA
     Dosage: (10 MG), ORAL
     Route: 048

REACTIONS (1)
  - DEATH [None]
